FAERS Safety Report 21804234 (Version 1)
Quarter: 2023Q1

REPORT INFORMATION
  Report Type: Other
  Country: US (occurrence: None)
  Receive Date: 20230102
  Receipt Date: 20230102
  Transmission Date: 20230418
  Serious: Yes (Hospitalization)
  Sender: FDA-Public Use
  Company Number: US-ROCHE-2568539

PATIENT
  Sex: Male
  Weight: 62.198 kg

DRUGS (3)
  1. OCREVUS [Suspect]
     Active Substance: OCRELIZUMAB
     Indication: Secondary progressive multiple sclerosis
     Dosage: /MAR/2019
     Route: 042
  2. OCREVUS [Suspect]
     Active Substance: OCRELIZUMAB
     Dosage: 26/FEB/2019
     Route: 042
  3. KEPPRA [Concomitant]
     Active Substance: LEVETIRACETAM
     Indication: Seizure

REACTIONS (10)
  - COVID-19 [Recovered/Resolved]
  - Asthenia [Not Recovered/Not Resolved]
  - Hypokinesia [Not Recovered/Not Resolved]
  - Reading disorder [Not Recovered/Not Resolved]
  - Nystagmus [Not Recovered/Not Resolved]
  - Constipation [Not Recovered/Not Resolved]
  - Fatigue [Not Recovered/Not Resolved]
  - Strabismus [Not Recovered/Not Resolved]
  - Muscle twitching [Not Recovered/Not Resolved]
  - Eye movement disorder [Not Recovered/Not Resolved]

NARRATIVE: CASE EVENT DATE: 20190101
